FAERS Safety Report 6055849-9 (Version None)
Quarter: 2009Q1

REPORT INFORMATION
  Report Type: 
  Country: None (occurrence: None)
  Receive Date: 20090126
  Receipt Date: 20080702
  Transmission Date: 20090719
  Serious: Yes (Hospitalization)
  Sender: FDA-Public Use
  Company Number: DSM-2009-00021

PATIENT
  Age: 26 Year
  Sex: Male

DRUGS (1)
  1. OLMETEC (OLMESARTAN MEDOXOMIL) (20 MILLIGRAM) (OLMESARTAN MEDOXOMIL) [Suspect]
     Dosage: ONCE
     Dates: start: 20080702, end: 20080702

REACTIONS (5)
  - BLOOD ALCOHOL INCREASED [None]
  - BLOOD MAGNESIUM ABNORMAL [None]
  - INTENTIONAL OVERDOSE [None]
  - SOMNOLENCE [None]
  - SUICIDE ATTEMPT [None]
